FAERS Safety Report 9015524 (Version 1)
Quarter: 2013Q1

REPORT INFORMATION
  Report Type: Spontaneous
  Country: US (occurrence: None)
  Receive Date: 20130110
  Receipt Date: 20130110
  Transmission Date: 20140127
  Serious: Yes (Hospitalization)
  Sender: FDA-Public Use
  Company Number: None

PATIENT
  Age: 9 Year
  Sex: Male
  Weight: 26.8 kg

DRUGS (1)
  1. GAMUNEX 10% TALECRIS BIOTHERAPEIES [Suspect]
     Dosage: 10GM ONCE IV DRIP
     Route: 041

REACTIONS (3)
  - Pyrexia [None]
  - Musculoskeletal stiffness [None]
  - Meningitis aseptic [None]
